FAERS Safety Report 6931981-X (Version None)
Quarter: 2010Q3

REPORT INFORMATION
  Report Type: 
  Country: None (occurrence: None)
  Receive Date: 20100819
  Receipt Date: 20100812
  Transmission Date: 20110219
  Serious: Yes (Death)
  Sender: FDA-Public Use
  Company Number: NL-BRISTOL-MYERS SQUIBB COMPANY-15238223

PATIENT
  Age: 22 Year
  Sex: Male

DRUGS (3)
  1. ABILIFY [Suspect]
     Indication: PSYCHOTIC DISORDER
     Dates: start: 20100727
  2. OLANZAPINE [Suspect]
     Dates: start: 20091029
  3. OXAZEPAM [Concomitant]

REACTIONS (1)
  - SUDDEN CARDIAC DEATH [None]
